FAERS Safety Report 24572391 (Version 1)
Quarter: 2024Q4

REPORT INFORMATION
  Report Type: Report from Study
  Country: CA (occurrence: CA)
  Receive Date: 20241101
  Receipt Date: 20241101
  Transmission Date: 20250115
  Serious: Yes (Life-Threatening, Other)
  Sender: JOHNSON AND JOHNSON
  Company Number: CA-JNJFOC-20240808650

PATIENT
  Age: 11 Year
  Sex: Male

DRUGS (9)
  1. REMICADE [Suspect]
     Active Substance: INFLIXIMAB
     Indication: Crohn^s disease
     Route: 041
     Dates: start: 20240801
  2. REMICADE [Suspect]
     Active Substance: INFLIXIMAB
     Route: 041
  3. REMICADE [Suspect]
     Active Substance: INFLIXIMAB
     Route: 041
     Dates: start: 20240801
  4. REMICADE [Suspect]
     Active Substance: INFLIXIMAB
     Route: 041
  5. REMICADE [Suspect]
     Active Substance: INFLIXIMAB
     Route: 041
  6. HYDROCORTISONE [Suspect]
     Active Substance: HYDROCORTISONE
     Indication: Product used for unknown indication
     Route: 042
  7. PREDNISONE [Concomitant]
     Active Substance: PREDNISONE
     Dosage: FOR TWO MONTHS
  8. CIPROFLOXACIN [Concomitant]
     Active Substance: CIPROFLOXACIN
     Dosage: FOR TWO MONTHS
  9. METRONIDAZOLE [Concomitant]
     Active Substance: METRONIDAZOLE
     Dosage: FOR TWO MONTHS

REACTIONS (10)
  - Crohn^s disease [Recovering/Resolving]
  - Wheezing [Recovering/Resolving]
  - Throat tightness [Recovered/Resolved]
  - Respiratory rate increased [Recovered/Resolved]
  - Lacrimation increased [Recovering/Resolving]
  - Cough [Recovering/Resolving]
  - Flushing [Recovering/Resolving]
  - Drug level decreased [Unknown]
  - Inflammation [Unknown]
  - Off label use [Unknown]
